FAERS Safety Report 5306407-2 (Version None)
Quarter: 2007Q2

REPORT INFORMATION
  Report Type: 
  Country: None (occurrence: None)
  Receive Date: 20070424
  Receipt Date: 20070412
  Transmission Date: 20071010
  Serious: Yes (Hospitalization)
  Sender: FDA-Public Use
  Company Number: GB-GENENTECH-237674

PATIENT
  Sex: Male
  Weight: 115 kg

DRUGS (10)
  1. BEVACIZUMAB [Suspect]
     Indication: COLON CANCER
     Dosage: 862.5 MG, Q3W
     Route: 042
     Dates: start: 20070214
  2. CAPECITABINE [Suspect]
     Indication: COLON CANCER
     Dosage: 4300 MG, D1-14/Q3W
     Route: 048
     Dates: start: 20070214, end: 20070222
  3. OXALIPLATIN [Suspect]
     Indication: COLON CANCER
     Dosage: 288.6 MG, Q3W
     Route: 042
     Dates: start: 20070214
  4. PARACETAMOL [Concomitant]
     Indication: DRUG USE FOR UNKNOWN INDICATION
     Dates: start: 20061215
  5. RANITIDINE [Concomitant]
     Indication: DRUG USE FOR UNKNOWN INDICATION
     Dates: start: 20061215
  6. TRAMADOL HCL [Concomitant]
     Indication: DRUG USE FOR UNKNOWN INDICATION
     Dates: start: 20061215
  7. SERETIDE [Concomitant]
     Indication: DRUG USE FOR UNKNOWN INDICATION
     Dates: start: 20020615
  8. SALBUTAMOL [Concomitant]
     Indication: DRUG USE FOR UNKNOWN INDICATION
     Dates: start: 20020615
  9. LACTULOSE [Concomitant]
     Indication: DRUG USE FOR UNKNOWN INDICATION
     Dosage: UNK, UNK
     Dates: start: 20061215, end: 20070221
  10. FERROUS SULFATE [Concomitant]
     Indication: DRUG USE FOR UNKNOWN INDICATION
     Dates: start: 20061215

REACTIONS (9)
  - ABDOMINAL ABSCESS [None]
  - ABDOMINAL PAIN [None]
  - BLOOD CALCIUM INCREASED [None]
  - BLOOD SODIUM DECREASED [None]
  - FLATULENCE [None]
  - LIVER DISORDER [None]
  - NEUTROPHIL COUNT DECREASED [None]
  - PYREXIA [None]
  - WHITE BLOOD CELL COUNT DECREASED [None]
